FAERS Safety Report 11203320 (Version 1)
Quarter: 2015Q2

REPORT INFORMATION
  Report Type: Spontaneous
  Country: US (occurrence: US)
  Receive Date: 20150619
  Receipt Date: 20150619
  Transmission Date: 20150821
  Serious: No
  Sender: FDA-Public Use
  Company Number: US-CELGENEUS-USA-2015051414

PATIENT
  Age: 57 Year
  Sex: Female

DRUGS (1)
  1. OTEZLA [Suspect]
     Active Substance: APREMILAST
     Indication: PSORIASIS
     Dosage: DAY 1 10MG AM, DAY 2 10MG AM AND PM, DAY 3 10MG AM, 20MG PM, DAY 4 20MG AM AND PM, DAY 5 20MG AM, 30
     Route: 048

REACTIONS (1)
  - Abdominal discomfort [Recovered/Resolved]

NARRATIVE: CASE EVENT DATE: 20150405
